FAERS Safety Report 7100396-6 (Version None)
Quarter: 2010Q4

REPORT INFORMATION
  Report Type: 
  Country: None (occurrence: None)
  Receive Date: 20101112
  Receipt Date: 20101002
  Transmission Date: 20110411
  Serious: Yes (Other)
  Sender: FDA-Public Use
  Company Number: PHHY2010CA66191

PATIENT
  Sex: Female

DRUGS (2)
  1. ALISKIREN ALI+ [Suspect]
     Dosage: 300 MG, UNK
     Route: 048
     Dates: start: 20100208, end: 20100818
  2. SYNTHROID [Concomitant]
     Dosage: 0.05 (UNSPECIFIED UNITS)
     Dates: start: 20050101

REACTIONS (2)
  - BLOOD PRESSURE DECREASED [None]
  - DIZZINESS [None]
